FAERS Safety Report 9612920 (Version 2)
Quarter: 2013Q4

REPORT INFORMATION
  Report Type: Spontaneous
  Country: JP (occurrence: JP)
  Receive Date: 20131010
  Receipt Date: 20131031
  Transmission Date: 20140711
  Serious: Yes (Other)
  Sender: FDA-Public Use
  Company Number: JP-ELI_LILLY_AND_COMPANY-JP201310001115

PATIENT
  Age: 14 Year
  Sex: 0
  Weight: 32 kg

DRUGS (1)
  1. HUMATROPE [Suspect]
     Indication: GROWTH HORMONE DEFICIENCY
     Dosage: 0.175 MG/KG, OTHER
     Route: 058

REACTIONS (2)
  - Vitamin B12 deficiency [Recovered/Resolved]
  - Anaemia macrocytic [Recovered/Resolved]
